FAERS Safety Report 8862439 (Version 1)
Quarter: 2012Q4

REPORT INFORMATION
  Report Type: 
  Country: US (occurrence: US)
  Receive Date: 20121026
  Receipt Date: 20121026
  Transmission Date: 20130627
  Serious: No
  Sender: FDA-Public Use
  Company Number: US-TEVA-366586USA

PATIENT
  Sex: Female
  Weight: 56.75 kg

DRUGS (1)
  1. NUVIGIL [Suspect]
     Indication: MULTIPLE SCLEROSIS

REACTIONS (2)
  - Drug ineffective [Not Recovered/Not Resolved]
  - Off label use [Unknown]
